FAERS Safety Report 25048046 (Version 3)
Quarter: 2025Q1

REPORT INFORMATION
  Report Type: 
  Country: US (occurrence: US)
  Receive Date: 20250306
  Receipt Date: 20250324
  Transmission Date: 20250409
  Serious: No
  Sender: JAZZ
  Company Number: US-JAZZ PHARMACEUTICALS-2025-US-005905

PATIENT
  Sex: Male

DRUGS (1)
  1. EPIDIOLEX [Suspect]
     Active Substance: CANNABIDIOL
     Indication: Seizure
     Route: 048
     Dates: start: 20250121, end: 20250301

REACTIONS (1)
  - No adverse event [Unknown]
